FAERS Safety Report 10612021 (Version 3)
Quarter: 2015Q4

REPORT INFORMATION
  Report Type: Report from Study
  Country: JP (occurrence: JP)
  Receive Date: 20141126
  Receipt Date: 20151002
  Transmission Date: 20160304
  Serious: Yes (Hospitalization, Other)
  Sender: FDA-Public Use
  Company Number: JP-009507513-1411JPN000048

PATIENT
  Age: 76 Year
  Sex: Male
  Weight: 44.7 kg

DRUGS (4)
  1. SULFAMETHOXAZOLE AND TRIMETHOPRIM [Concomitant]
     Active Substance: SULFAMETHOXAZOLE\TRIMETHOPRIM
     Indication: ANTIFUNGAL PROPHYLAXIS
     Route: 048
  2. MIYA-BM [Concomitant]
     Active Substance: CLOSTRIDIUM BUTYRICUM SPORES STRAIN M-55
     Indication: PROPHYLAXIS
     Dosage: UNK
     Route: 048
     Dates: start: 20141002, end: 20150115
  3. TEMODAL [Suspect]
     Active Substance: TEMOZOLOMIDE
     Indication: GLIOBLASTOMA MULTIFORME
     Dosage: DAILY DOSE UNKNOWN
     Route: 041
     Dates: start: 20141001, end: 20141027
  4. LANSOPRAZOLE. [Concomitant]
     Active Substance: LANSOPRAZOLE
     Indication: PROPHYLAXIS
     Dosage: UNK
     Route: 048
     Dates: start: 20140902, end: 20150115

REACTIONS (9)
  - Nausea [Not Recovered/Not Resolved]
  - White blood cell count decreased [Unknown]
  - Lymphocyte count abnormal [Recovered/Resolved]
  - Opportunistic infection [Recovering/Resolving]
  - Vomiting [Not Recovered/Not Resolved]
  - Sepsis [Recovering/Resolving]
  - Hepatic function abnormal [Unknown]
  - Gamma-glutamyltransferase abnormal [Recovered/Resolved]
  - Sepsis [Recovered/Resolved]

NARRATIVE: CASE EVENT DATE: 20141004
